FAERS Safety Report 4391755-3 (Version None)
Quarter: 2004Q3

REPORT INFORMATION
  Report Type: 
  Country: None (occurrence: None)
  Receive Date: 20040701
  Receipt Date: 20040618
  Transmission Date: 20050211
  Serious: Yes (Hospitalization)
  Sender: FDA-Public Use
  Company Number: VISP-PR-0406S-0221

PATIENT
  Age: 57 Year
  Sex: Female

DRUGS (1)
  1. VISIPAQUE [Suspect]
     Indication: GASTROINTESTINAL HAEMORRHAGE
     Dosage: 132 ML, SINGLE DOSE, I.A.
     Dates: start: 20031205, end: 20031205

REACTIONS (3)
  - PRURITUS [None]
  - STEVENS-JOHNSON SYNDROME [None]
  - URTICARIA [None]
